FAERS Safety Report 16907378 (Version 1)
Quarter: 2019Q4

REPORT INFORMATION
  Report Type: Spontaneous
  Country: US (occurrence: US)
  Receive Date: 20190819
  Receipt Date: 20190819
  Transmission Date: 20200122
  Serious: No
  Sender: FDA-Public Use
  Company Number: None

PATIENT
  Age: 12 Year
  Sex: Male

DRUGS (2)
  1. PENNEEDLE  UF III 31GX5/16 [Suspect]
     Active Substance: DEVICE
     Route: 058
     Dates: start: 20160503
  2. NUTROPIN [Suspect]
     Active Substance: SOMATROPIN

REACTIONS (2)
  - Wrong technique in product usage process [None]
  - Device use error [None]

NARRATIVE: CASE EVENT DATE: 20190819
